FAERS Safety Report 20755256 (Version 1)
Quarter: 2022Q2

REPORT INFORMATION
  Report Type: Spontaneous
  Country: US (occurrence: US)
  Receive Date: 20220427
  Receipt Date: 20220427
  Transmission Date: 20220721
  Serious: No
  Sender: FDA-Public Use
  Company Number: US-PFIZERINC-GRACE00468398

PATIENT
  Sex: Female

DRUGS (2)
  1. TIMOLOL MALEATE [Suspect]
     Active Substance: TIMOLOL MALEATE
     Indication: Glaucoma
     Dosage: UNK
     Route: 065
  2. TIMOLOL MALEATE [Suspect]
     Active Substance: TIMOLOL MALEATE
     Indication: Intraocular pressure increased

REACTIONS (6)
  - Visual impairment [Unknown]
  - Sinus disorder [Unknown]
  - Rhinorrhoea [Unknown]
  - Ear disorder [Unknown]
  - Eye pain [Unknown]
  - Headache [Unknown]
